FAERS Safety Report 15267431 (Version 1)
Quarter: 2018Q3

REPORT INFORMATION
  Report Type: Spontaneous
  Country: US (occurrence: US)
  Receive Date: 20180724
  Receipt Date: 20180724
  Transmission Date: 20181010
  Serious: No
  Sender: FDA-Public Use
  Company Number: None

PATIENT
  Sex: Male
  Weight: 78.93 kg

DRUGS (3)
  1. FIRMAGON [Suspect]
     Active Substance: DEGARELIX ACETATE
     Indication: OSTEOPOROSIS
  2. FIRMAGON [Suspect]
     Active Substance: DEGARELIX ACETATE
     Indication: PROSTATE CANCER
     Route: 058
     Dates: start: 201708
  3. FIRMAGON [Suspect]
     Active Substance: DEGARELIX ACETATE
     Indication: OSTEOPOROSIS
     Route: 058
     Dates: start: 201708

REACTIONS (1)
  - Hip arthroplasty [None]
